FAERS Safety Report 8616812-4 (Version None)
Quarter: 2012Q3

REPORT INFORMATION
  Report Type: 
  Country: None (occurrence: None)
  Receive Date: 20120823
  Receipt Date: 20120807
  Transmission Date: 20120928
  Serious: No
  Sender: FDA-Public Use
  Company Number: US-009507513-1208USA003629

PATIENT

DRUGS (3)
  1. VICTRELIS [Suspect]
     Dosage: 4 DF, TID
     Route: 048
  2. PEGASYS [Suspect]
     Route: 058
  3. REBETOL [Suspect]
     Route: 048

REACTIONS (3)
  - URINARY INCONTINENCE [None]
  - DIARRHOEA [None]
  - PRURITUS [None]
